FAERS Safety Report 14876491 (Version 1)
Quarter: 2018Q2

REPORT INFORMATION
  Report Type: Report from Study
  Country: ES (occurrence: ES)
  Receive Date: 20180510
  Receipt Date: 20180510
  Transmission Date: 20180711
  Serious: Yes (Other)
  Sender: FDA-Public Use
  Company Number: ES-TEVA-2018-ES-891703

PATIENT
  Age: 80 Year
  Sex: Female

DRUGS (3)
  1. QUETIAPINE 25 MG COMPRIMIDO [Suspect]
     Active Substance: QUETIAPINE
     Route: 048
     Dates: start: 20160427, end: 20160427
  2. DEPRAX 100 MG COMPRIMIDOS RECUBIERTOS CON PELICULA EFG [Concomitant]
     Route: 065
  3. ENALAPRIL (2142A) [Concomitant]
     Active Substance: ENALAPRIL
     Route: 065

REACTIONS (2)
  - Dizziness [Recovered/Resolved]
  - Loss of consciousness [Recovered/Resolved]

NARRATIVE: CASE EVENT DATE: 20160427
